FAERS Safety Report 7307816-2 (Version None)
Quarter: 2011Q1

REPORT INFORMATION
  Report Type: 
  Country: None (occurrence: None)
  Receive Date: 20110223
  Receipt Date: 20110215
  Transmission Date: 20110831
  Serious: Yes (Hospitalization, Other)
  Sender: FDA-Public Use
  Company Number: FR-KINGPHARMUSA00001-K201000539

PATIENT
  Age: 84 Year
  Sex: Female

DRUGS (13)
  1. NITROMEX [Concomitant]
  2. IMPUGAN [Concomitant]
  3. TROMBYL [Concomitant]
  4. ALTACE [Suspect]
     Indication: OEDEMA DUE TO CARDIAC DISEASE
     Dosage: 1.25 MG, QD
     Dates: start: 20100920
  5. LOPERAMIDE [Concomitant]
  6. IMDUR [Concomitant]
  7. KALCIPOS [Concomitant]
  8. SELOKEN [Suspect]
     Indication: CARDIAC FAILURE
     Dosage: 25 MG, QD
     Route: 048
     Dates: end: 20100919
  9. FOSAMAX [Concomitant]
  10. ACETAMINOPHEN [Concomitant]
  11. ALTACE [Suspect]
     Indication: CARDIAC FAILURE
     Dosage: 2.5 MG, QD
     Route: 048
     Dates: end: 20100919
  12. PREDNISOLONE [Concomitant]
  13. ESOMEPRAZOLE MAGNESIUM [Concomitant]

REACTIONS (6)
  - ERYSIPELAS [None]
  - OVERDOSE [None]
  - PAIN IN EXTREMITY [None]
  - OEDEMA PERIPHERAL [None]
  - ERYTHEMA [None]
  - HYPOTENSION [None]
